FAERS Safety Report 9788018 (Version 2)
Quarter: 2014Q1

REPORT INFORMATION
  Report Type: Spontaneous
  Country: JP (occurrence: JP)
  Receive Date: 20131230
  Receipt Date: 20140106
  Transmission Date: 20141002
  Serious: Yes (Hospitalization)
  Sender: FDA-Public Use
  Company Number: JP-MALLINCKRODT-T201305185

PATIENT
  Age: 81 Year
  Sex: Female
  Weight: 54 kg

DRUGS (4)
  1. OPTIRAY [Suspect]
     Indication: COMPUTERISED TOMOGRAM
     Dosage: 94 ML, SINGLE
     Route: 042
     Dates: start: 20131119, end: 20131119
  2. TELMISARTAN [Concomitant]
     Dosage: UNK
     Route: 048
  3. TRICHLORMETHIAZIDE [Concomitant]
     Dosage: UNK
     Route: 048
  4. CLOSTRIDIUM BUTYRICUM [Concomitant]
     Dosage: UNK
     Route: 048

REACTIONS (1)
  - Anaphylactic shock [Recovering/Resolving]
